FAERS Safety Report 4444460-9 (Version None)
Quarter: 2004Q3

REPORT INFORMATION
  Report Type: 
  Country: None (occurrence: None)
  Receive Date: 20040902
  Receipt Date: 20040825
  Transmission Date: 20050211
  Serious: Yes (Hospitalization)
  Sender: FDA-Public Use
  Company Number: HQWYE607726AUG04

PATIENT
  Sex: Female

DRUGS (4)
  1. EFFEXOR XR [Suspect]
     Dosage: SEE IMAGE
     Route: 048
     Dates: end: 20040608
  2. EFFEXOR XR [Suspect]
     Dosage: SEE IMAGE
     Route: 048
     Dates: start: 20040609, end: 20040609
  3. EFFEXOR XR [Suspect]
     Dosage: SEE IMAGE
     Route: 048
     Dates: start: 20040610, end: 20040612
  4. REMERON [Suspect]
     Dates: start: 20040611, end: 20040612

REACTIONS (9)
  - AGITATION [None]
  - COLOUR BLINDNESS ACQUIRED [None]
  - DELIRIUM [None]
  - DRUG INTERACTION [None]
  - DRUG WITHDRAWAL SYNDROME [None]
  - MENTAL IMPAIRMENT [None]
  - PARAESTHESIA [None]
  - REPETITIVE SPEECH [None]
  - SPEECH DISORDER [None]
